FAERS Safety Report 6591152-6 (Version None)
Quarter: 2010Q1

REPORT INFORMATION
  Report Type: 
  Country: None (occurrence: None)
  Receive Date: 20100219
  Receipt Date: 20090925
  Transmission Date: 20100710
  Serious: No
  Sender: FDA-Public Use
  Company Number: US-BRISTOL-MYERS SQUIBB COMPANY-14793905

PATIENT
  Sex: Female

DRUGS (2)
  1. KENALOG [Suspect]
  2. ZOLOFT [Concomitant]

REACTIONS (1)
  - MENORRHAGIA [None]
